FAERS Safety Report 25739996 (Version 1)
Quarter: 2025Q3

REPORT INFORMATION
  Report Type: Spontaneous
  Country: US (occurrence: US)
  Receive Date: 20250829
  Receipt Date: 20250829
  Transmission Date: 20251021
  Serious: Yes (Other)
  Sender: MYLAN
  Company Number: US-MYLANLABS-2025M1072247

PATIENT
  Age: 62 Year
  Sex: Male

DRUGS (16)
  1. PREDNISONE [Suspect]
     Active Substance: PREDNISONE
     Indication: Uveitis
  2. PREDNISONE [Suspect]
     Active Substance: PREDNISONE
     Indication: Ocular sarcoidosis
  3. PREDNISONE [Suspect]
     Active Substance: PREDNISONE
     Route: 065
  4. PREDNISONE [Suspect]
     Active Substance: PREDNISONE
     Route: 065
  5. PREDNISONE [Suspect]
     Active Substance: PREDNISONE
     Dosage: 40 MILLIGRAM, QD, HIGH-DOSE
  6. PREDNISONE [Suspect]
     Active Substance: PREDNISONE
     Dosage: 40 MILLIGRAM, QD, HIGH-DOSE
  7. PREDNISONE [Suspect]
     Active Substance: PREDNISONE
     Dosage: 40 MILLIGRAM, QD, HIGH-DOSE
     Route: 065
  8. PREDNISONE [Suspect]
     Active Substance: PREDNISONE
     Dosage: 40 MILLIGRAM, QD, HIGH-DOSE
     Route: 065
  9. PREDNISONE [Suspect]
     Active Substance: PREDNISONE
  10. PREDNISONE [Suspect]
     Active Substance: PREDNISONE
     Route: 065
  11. PREDNISONE [Suspect]
     Active Substance: PREDNISONE
  12. PREDNISONE [Suspect]
     Active Substance: PREDNISONE
     Route: 065
  13. MYCOPHENOLATE MOFETIL [Suspect]
     Active Substance: MYCOPHENOLATE MOFETIL
     Indication: Uveitis
     Dosage: 1.5 GRAM, QD
     Dates: start: 2014, end: 2020
  14. MYCOPHENOLATE MOFETIL [Suspect]
     Active Substance: MYCOPHENOLATE MOFETIL
     Indication: Ocular sarcoidosis
     Dosage: 1.5 GRAM, QD
     Route: 065
     Dates: start: 2014, end: 2020
  15. MYCOPHENOLATE MOFETIL [Suspect]
     Active Substance: MYCOPHENOLATE MOFETIL
     Dosage: 1.5 GRAM, QD
     Route: 065
     Dates: start: 2014, end: 2020
  16. MYCOPHENOLATE MOFETIL [Suspect]
     Active Substance: MYCOPHENOLATE MOFETIL
     Dosage: 1.5 GRAM, QD
     Dates: start: 2014, end: 2020

REACTIONS (2)
  - Skin squamous cell carcinoma metastatic [Recovering/Resolving]
  - Neoplasm recurrence [Recovering/Resolving]

NARRATIVE: CASE EVENT DATE: 20200101
